FAERS Safety Report 24092944 (Version 1)
Quarter: 2024Q3

REPORT INFORMATION
  Report Type: Spontaneous
  Country: US (occurrence: None)
  Receive Date: 20240715
  Receipt Date: 20240715
  Transmission Date: 20241017
  Serious: Yes (Hospitalization)
  Sender: Public
  Company Number: None

PATIENT
  Age: 65 Year
  Sex: Male
  Weight: 118.3 kg

DRUGS (21)
  1. SPRYCEL [Suspect]
     Active Substance: DASATINIB
     Indication: Acute lymphocytic leukaemia
     Dosage: FREQUENCY : TWICE A DAY;?
     Route: 048
     Dates: start: 20240709
  2. AMIODARONE [Concomitant]
     Active Substance: AMIODARONE
  3. LYSIPLEX [Concomitant]
  4. BRIMONIDINE [Concomitant]
     Active Substance: BRIMONIDINE TARTRATE
  5. METFORMIN [Concomitant]
     Active Substance: METFORMIN HYDROCHLORIDE
  6. MEXITIL [Concomitant]
     Active Substance: MEXILETINE HYDROCHLORIDE
  7. CARVEDILOL [Concomitant]
     Active Substance: CARVEDILOL
  8. OMEGA-3 ACIDS [Concomitant]
     Active Substance: OMEGA-3 FATTY ACIDS
  9. POTASSIUM [Concomitant]
     Active Substance: POTASSIUM
  10. ELIQUIS [Concomitant]
     Active Substance: APIXABAN
  11. ROSUVASTATIN [Concomitant]
     Active Substance: ROSUVASTATIN
  12. SERTRALINE [Concomitant]
     Active Substance: SERTRALINE HYDROCHLORIDE
  13. DOCUSATE [Concomitant]
     Active Substance: DOCUSATE
  14. TAMSULOSIN [Concomitant]
     Active Substance: TAMSULOSIN
  15. TIMOLOL [Concomitant]
     Active Substance: TIMOLOL
  16. ENTRESTO [Concomitant]
     Active Substance: SACUBITRIL\VALSARTAN
  17. TRAZODONE [Concomitant]
     Active Substance: TRAZODONE HYDROCHLORIDE
  18. FUROSEMIDE [Concomitant]
     Active Substance: FUROSEMIDE
  19. GABAPENTIN [Concomitant]
     Active Substance: GABAPENTIN
  20. GLIMEPIRIDE [Concomitant]
     Active Substance: GLIMEPIRIDE
  21. JARDIANCE [Concomitant]
     Active Substance: EMPAGLIFLOZIN

REACTIONS (2)
  - Clostridium difficile infection [None]
  - Haematological infection [None]

NARRATIVE: CASE EVENT DATE: 20240715
